FAERS Safety Report 7484441-4 (Version None)
Quarter: 2011Q2

REPORT INFORMATION
  Report Type: 
  Country: None (occurrence: None)
  Receive Date: 20110517
  Receipt Date: 20110505
  Transmission Date: 20111010
  Serious: Yes (Hospitalization)
  Sender: FDA-Public Use
  Company Number: NL-SANOFI-AVENTIS-2011SA028670

PATIENT
  Sex: Female

DRUGS (7)
  1. OXALIPLATIN [Suspect]
     Route: 042
  2. DOCETAXEL [Suspect]
     Route: 042
     Dates: start: 20110316, end: 20110316
  3. DOCETAXEL [Suspect]
     Route: 042
  4. OXALIPLATIN [Suspect]
     Route: 042
     Dates: start: 20110316, end: 20110316
  5. BEVACIZUMAB [Suspect]
     Route: 042
     Dates: start: 20110316, end: 20110316
  6. CAPECITABINE [Suspect]
     Route: 042
     Dates: start: 20110316
  7. BEVACIZUMAB [Suspect]
     Route: 042

REACTIONS (1)
  - OESOPHAGEAL PERFORATION [None]
